FAERS Safety Report 10972802 (Version 2)
Quarter: 2015Q2

REPORT INFORMATION
  Report Type: Spontaneous
  Country: US (occurrence: US)
  Receive Date: 20150331
  Receipt Date: 20150525
  Transmission Date: 20150821
  Serious: Yes (Hospitalization)
  Sender: FDA-Public Use
  Company Number: US-JNJFOC-20120603423

PATIENT
  Sex: Male
  Weight: 91.63 kg

DRUGS (6)
  1. RISPERDAL [Suspect]
     Active Substance: RISPERIDONE
     Indication: SCHIZOPHRENIA, PARANOID TYPE
     Route: 048
     Dates: start: 199805, end: 2001
  2. RISPERIDONE. [Suspect]
     Active Substance: RISPERIDONE
     Indication: SCHIZOPHRENIA, PARANOID TYPE
     Route: 048
     Dates: start: 2005
  3. RISPERDAL [Suspect]
     Active Substance: RISPERIDONE
     Indication: SCHIZOPHRENIA, PARANOID TYPE
     Route: 048
     Dates: end: 2005
  4. RISPERDAL [Suspect]
     Active Substance: RISPERIDONE
     Indication: SCHIZOPHRENIA, PARANOID TYPE
     Dosage: 1997 OR 1998
     Route: 048
     Dates: start: 1995
  5. TRILAFON [Concomitant]
     Active Substance: PERPHENAZINE
     Indication: SCHIZOPHRENIA, PARANOID TYPE
     Route: 065
     Dates: start: 1978, end: 1995
  6. MOLINDONE [Concomitant]
     Active Substance: MOLINDONE
     Indication: SCHIZOPHRENIA, PARANOID TYPE
     Route: 065
     Dates: start: 1978, end: 1995

REACTIONS (3)
  - Eye movement disorder [Recovered/Resolved]
  - Hypertension [Recovered/Resolved]
  - Therapy cessation [Recovered/Resolved]

NARRATIVE: CASE EVENT DATE: 1997
